FAERS Safety Report 4508888-0 (Version None)
Quarter: 2004Q4

REPORT INFORMATION
  Report Type: 
  Country: None (occurrence: None)
  Receive Date: 20041118
  Receipt Date: 20041109
  Transmission Date: 20050328
  Serious: Yes (Hospitalization, Other)
  Sender: FDA-Public Use
  Company Number: 2004-09-0821

PATIENT
  Age: 33 Year
  Sex: Male
  Weight: 85 kg

DRUGS (2)
  1. INTERFERON ALFA INJECTABLE [Suspect]
     Indication: HEPATITIS C
     Dosage: 3 MI TIW SUBCUTANEOUS
     Route: 058
     Dates: start: 19930607, end: 19931201
  2. DOLIPRANE [Concomitant]
     Dosage: PRN

REACTIONS (10)
  - ASCITES [None]
  - CONSTIPATION [None]
  - DISEASE RECURRENCE [None]
  - DRUG INEFFECTIVE [None]
  - HEPATIC NEOPLASM MALIGNANT [None]
  - HEPATITIS C [None]
  - HEPATOMEGALY [None]
  - NON-HODGKIN'S LYMPHOMA [None]
  - PSORIATIC ARTHROPATHY [None]
  - WEIGHT DECREASED [None]
